FAERS Safety Report 16614776 (Version 2)
Quarter: 2019Q3

REPORT INFORMATION
  Report Type: Spontaneous
  Country: US (occurrence: US)
  Receive Date: 20190723
  Receipt Date: 20190725
  Transmission Date: 20191004
  Serious: Yes (Other)
  Sender: FDA-Public Use
  Company Number: US-PFIZER INC-2019310090

PATIENT
  Age: 45 Year
  Sex: Female

DRUGS (3)
  1. LEUCOVORIN [CALCIUM FOLINATE] [Concomitant]
     Active Substance: LEUCOVORIN
     Indication: ADENOCARCINOMA OF COLON
     Dosage: UNK, CYCLIC
  2. 5-FLUOROURACIL [FLUOROURACIL] [Concomitant]
     Active Substance: FLUOROURACIL
     Indication: ADENOCARCINOMA OF COLON
     Dosage: UNK, CYCLIC
  3. OXALIPLATIN. [Suspect]
     Active Substance: OXALIPLATIN
     Indication: ADENOCARCINOMA OF COLON
     Dosage: 85 MG/M2, CYCLIC (ON AND OFF, THREE DOSES)
     Dates: start: 200212, end: 200312

REACTIONS (5)
  - Optic neuritis [Recovered/Resolved]
  - Papilloedema [Recovered/Resolved]
  - Eye haemorrhage [Recovered/Resolved]
  - Ocular toxicity [Recovered/Resolved]
  - Blindness [Recovered/Resolved]
